FAERS Safety Report 14220043 (Version 3)
Quarter: 2023Q4

REPORT INFORMATION
  Report Type: Spontaneous
  Country: US (occurrence: US)
  Receive Date: 20171123
  Receipt Date: 20231018
  Transmission Date: 20240110
  Serious: No
  Sender: FDA-Public Use
  Company Number: US-JNJFOC-20170923553

PATIENT
  Age: 21 Year
  Sex: Male

DRUGS (15)
  1. RISPERDAL [Suspect]
     Active Substance: RISPERIDONE
     Indication: Disturbance in attention
     Route: 048
     Dates: start: 20040616, end: 20071102
  2. RISPERDAL [Suspect]
     Active Substance: RISPERIDONE
     Indication: Nervousness
     Route: 048
     Dates: end: 201701
  3. RISPERDAL [Suspect]
     Active Substance: RISPERIDONE
     Indication: Impulsive behaviour
  4. RISPERDAL [Suspect]
     Active Substance: RISPERIDONE
     Indication: Frustration tolerance decreased
  5. RISPERDAL [Suspect]
     Active Substance: RISPERIDONE
     Indication: Aggression
  6. RISPERIDONE [Suspect]
     Active Substance: RISPERIDONE
     Indication: Disturbance in attention
     Route: 048
     Dates: start: 20161020, end: 20161227
  7. RISPERIDONE [Suspect]
     Active Substance: RISPERIDONE
     Indication: Nervousness
  8. RISPERIDONE [Suspect]
     Active Substance: RISPERIDONE
     Indication: Impulsive behaviour
  9. RISPERIDONE [Suspect]
     Active Substance: RISPERIDONE
     Indication: Frustration tolerance decreased
  10. RISPERIDONE [Suspect]
     Active Substance: RISPERIDONE
     Indication: Aggression
  11. RISPERIDONE [Suspect]
     Active Substance: RISPERIDONE
     Indication: Disturbance in attention
     Route: 048
     Dates: start: 20151002, end: 20160929
  12. RISPERIDONE [Suspect]
     Active Substance: RISPERIDONE
     Indication: Nervousness
  13. RISPERIDONE [Suspect]
     Active Substance: RISPERIDONE
     Indication: Impulsive behaviour
  14. RISPERIDONE [Suspect]
     Active Substance: RISPERIDONE
     Indication: Frustration tolerance decreased
  15. RISPERIDONE [Suspect]
     Active Substance: RISPERIDONE
     Indication: Aggression

REACTIONS (2)
  - Emotional distress [Unknown]
  - Gynaecomastia [Unknown]

NARRATIVE: CASE EVENT DATE: 20161128
